FAERS Safety Report 18120731 (Version 1)
Quarter: 2020Q3

REPORT INFORMATION
  Report Type: Spontaneous
  Country: US (occurrence: US)
  Receive Date: 20200806
  Receipt Date: 20200806
  Transmission Date: 20201103
  Serious: Yes (Other)
  Sender: FDA-Public Use
  Company Number: US-PFIZER INC-2020295817

PATIENT
  Sex: Male

DRUGS (2)
  1. METHOTREXATE SODIUM. [Suspect]
     Active Substance: METHOTREXATE SODIUM
     Indication: PAIN
     Dosage: UNK
  2. METHOTREXATE SODIUM. [Suspect]
     Active Substance: METHOTREXATE SODIUM
     Indication: INFLAMMATION

REACTIONS (7)
  - Vomiting [Unknown]
  - Gait inability [Unknown]
  - Depressed mood [Unknown]
  - Illness [Unknown]
  - Dizziness [Unknown]
  - Nausea [Unknown]
  - Drug ineffective [Unknown]
